FAERS Safety Report 10023433 (Version 1)
Quarter: 2013Q4

REPORT INFORMATION
  Report Type: Spontaneous
  Country: US (occurrence: None)
  Receive Date: 20131224
  Receipt Date: 20131224
  Transmission Date: 20140711
  Serious: Yes (Hospitalization)
  Sender: FDA-Public Use
  Company Number: UTC-020284

PATIENT
  Age: 42 Year
  Sex: Female
  Weight: 106.8 kg

DRUGS (2)
  1. REMODULIN [Suspect]
     Indication: PULMONARY HYPERTENSION
     Dosage: 48.96 UG/KG (0.034 UG/KG, 1 IN 1 MIN, INTRAVENOU
     Route: 042
     Dates: start: 20051031
  2. REVATO (SILDENAFIL CITRATE) (UNKNOWN) [Concomitant]

REACTIONS (1)
  - Device related infection [None]
